FAERS Safety Report 10446850 (Version 1)
Quarter: 2014Q3

REPORT INFORMATION
  Report Type: Spontaneous
  Country: US (occurrence: None)
  Receive Date: 20140909
  Receipt Date: 20140909
  Transmission Date: 20150326
  Serious: Yes (Other)
  Sender: FDA-Public Use
  Company Number: 2009S1006452

PATIENT
  Age: 77 Year
  Sex: Male

DRUGS (2)
  1. PHOSPHO-SODA [Suspect]
     Active Substance: SODIUM PHOSPHATE, DIBASIC\SODIUM PHOSPHATE, MONOBASIC
     Indication: COLONOSCOPY
     Dosage: 1 IN 2 DAYS
     Route: 048
     Dates: start: 20080626, end: 20080627
  2. FLEET [Suspect]
     Active Substance: BISACODYL\GLYCERIN\MINERAL OIL\SODIUM PHOSPHATE, DIBASIC\SODIUM PHOSPHATE, MONOBASIC
     Indication: COLONOSCOPY
     Route: 054

REACTIONS (1)
  - Renal failure chronic [None]

NARRATIVE: CASE EVENT DATE: 2008
